FAERS Safety Report 9505682 (Version 1)
Quarter: 2013Q1

REPORT INFORMATION
  Report Type: Spontaneous
  Country: US (occurrence: None)
  Receive Date: 20130225
  Receipt Date: 20130225
  Transmission Date: 20140127
  Serious: No
  Sender: FDA-Public Use
  Company Number: 367996

PATIENT
  Age: 66 Year
  Sex: Female
  Weight: 99.8 kg

DRUGS (2)
  1. VICTOZA [Suspect]
     Indication: TYPE 2 DIABETES MELLITUS
     Route: 058
     Dates: start: 2011
  2. METFORMIN [Concomitant]

REACTIONS (5)
  - Blood pressure increased [None]
  - Disorientation [None]
  - Crying [None]
  - Blood glucose increased [None]
  - Nausea [None]
